FAERS Safety Report 7877664-3 (Version None)
Quarter: 2011Q4

REPORT INFORMATION
  Report Type: 
  Country: None (occurrence: None)
  Receive Date: 20111031
  Receipt Date: 20111031
  Transmission Date: 20120403
  Serious: Yes (Other)
  Sender: FDA-Public Use
  Company Number: None

PATIENT
  Age: 55 Year
  Sex: Female
  Weight: 48.08 kg

DRUGS (1)
  1. BONIVA [Suspect]
     Dosage: 150 MG
     Route: 048
     Dates: start: 20110101, end: 20110201

REACTIONS (6)
  - INFLUENZA LIKE ILLNESS [None]
  - BACK PAIN [None]
  - BONE PAIN [None]
  - ARTHRALGIA [None]
  - PAIN IN EXTREMITY [None]
  - VERTIGO [None]
